FAERS Safety Report 5465582-X (Version None)
Quarter: 2007Q3

REPORT INFORMATION
  Report Type: 
  Country: None (occurrence: None)
  Receive Date: 20070919
  Receipt Date: 20070903
  Transmission Date: 20080115
  Serious: Yes (Life-Threatening, Hospitalization)
  Sender: FDA-Public Use
  Company Number: 2007RR-09818

PATIENT
  Age: 64 Year
  Sex: Male

DRUGS (4)
  1. FUROSEMIDE [Suspect]
     Indication: DIURETIC THERAPY
  2. LITHIUM CARBONATE [Suspect]
     Indication: HYPOMANIA
     Dosage: 800 MG,
  3. RAMIPRIL [Suspect]
  4. AMILORIDE (AMILORIDE [Concomitant]

REACTIONS (10)
  - CONFUSIONAL STATE [None]
  - DRUG INTERACTION [None]
  - DRUG LEVEL INCREASED [None]
  - HAEMODYNAMIC INSTABILITY [None]
  - MOOD SWINGS [None]
  - NEPHROGENIC DIABETES INSIPIDUS [None]
  - PNEUMOTHORAX [None]
  - RESPIRATORY FAILURE [None]
  - SEPSIS [None]
  - SOMNOLENCE [None]
